FAERS Safety Report 7637495-6 (Version None)
Quarter: 2011Q3

REPORT INFORMATION
  Report Type: 
  Country: None (occurrence: None)
  Receive Date: 20110726
  Receipt Date: 20110715
  Transmission Date: 20111222
  Serious: Yes (Other)
  Sender: FDA-Public Use
  Company Number: PHHY2011DE48667

PATIENT
  Sex: Male

DRUGS (3)
  1. TASIGNA [Suspect]
     Dosage: 400 MG PER DAY
     Route: 048
     Dates: end: 20110411
  2. TASIGNA [Suspect]
     Indication: CHRONIC MYELOID LEUKAEMIA
     Dosage: 800 MG PER DAY
     Route: 048
     Dates: start: 20110314, end: 20110411
  3. PANTOPRAZOLE [Concomitant]
     Dosage: 40 MG, QD
     Route: 048
     Dates: start: 20090101

REACTIONS (2)
  - PAIN IN EXTREMITY [None]
  - FLUID RETENTION [None]
